FAERS Safety Report 14279117 (Version 1)
Quarter: 2017Q4

REPORT INFORMATION
  Report Type: Spontaneous
  Country: US (occurrence: US)
  Receive Date: 20171213
  Receipt Date: 20171213
  Transmission Date: 20180321
  Serious: No
  Sender: FDA-Public Use
  Company Number: US-AUROBINDO-AUR-APU-2017-43692

PATIENT

DRUGS (1)
  1. RALOXIFENE HYDROCHLORIDE TABLETS USP 60MG [Suspect]
     Active Substance: RALOXIFENE HYDROCHLORIDE
     Indication: PRODUCT USED FOR UNKNOWN INDICATION
     Dosage: UNK

REACTIONS (4)
  - Product substitution issue [Unknown]
  - Flatulence [Unknown]
  - Constipation [Unknown]
  - Abdominal distension [Unknown]
